FAERS Safety Report 9634294 (Version 1)
Quarter: 2013Q4

REPORT INFORMATION
  Report Type: Spontaneous
  Country: GB (occurrence: None)
  Receive Date: 20131017
  Receipt Date: 20131017
  Transmission Date: 20140711
  Serious: Yes (Other)
  Sender: FDA-Public Use
  Company Number: AUR-APL-2013-08386

PATIENT
  Age: 55 Year
  Sex: Female

DRUGS (7)
  1. LISINOPRIL [Suspect]
     Indication: HYPERTENSION
     Route: 048
     Dates: end: 20130911
  2. SERTRALINE [Suspect]
     Indication: DEPRESSION
     Route: 048
     Dates: start: 20130501, end: 20130911
  3. DOCUSATE SODIUM(DOCUSATE SODIUM) [Concomitant]
  4. LEVOTHYROXINE(LEVOTHYROXINE) [Concomitant]
  5. NAPROXEN(NAPROXEN) [Concomitant]
  6. OMEPRAZOLE(OMEPRAZOLE) [Concomitant]
  7. ZOPICLONE(ZOPICLONE) [Concomitant]

REACTIONS (1)
  - Hypersensitivity [None]
